FAERS Safety Report 5682627-2 (Version None)
Quarter: 2008Q1

REPORT INFORMATION
  Report Type: 
  Country: None (occurrence: None)
  Receive Date: 20080327
  Receipt Date: 20080111
  Transmission Date: 20080703
  Serious: No
  Sender: FDA-Public Use
  Company Number: US-BRISTOL-MYERS SQUIBB COMPANY-14038251

PATIENT
  Age: 64 Year
  Sex: Female
  Weight: 73 kg

DRUGS (12)
  1. ORENCIA [Suspect]
     Indication: RHEUMATOID ARTHRITIS
     Dates: start: 20070801
  2. METOPROLOL TARTRATE [Concomitant]
  3. CARAFATE [Concomitant]
  4. EFFEXOR [Concomitant]
  5. LOVASTATIN [Concomitant]
  6. ZETIA [Concomitant]
  7. ASPIRIN [Concomitant]
  8. FOLIC ACID [Concomitant]
  9. ARAVA [Concomitant]
  10. NEXIUM [Concomitant]
  11. HYDROCHLOROTHIAZIDE [Concomitant]
  12. OXYGEN [Concomitant]

REACTIONS (1)
  - DERMATITIS PSORIASIFORM [None]
